FAERS Safety Report 6865952-9 (Version None)
Quarter: 2010Q3

REPORT INFORMATION
  Report Type: 
  Country: None (occurrence: None)
  Receive Date: 20100719
  Receipt Date: 20100701
  Transmission Date: 20110219
  Serious: Yes (Other)
  Sender: FDA-Public Use
  Company Number: 637933

PATIENT
  Age: 51 Year
  Sex: Male

DRUGS (15)
  1. VINCRISTINE SULFATE [Suspect]
     Dates: start: 20081103
  2. CYCLOPHOSPHAMIDE [Suspect]
     Dates: start: 20081103
  3. MABTHERA [Suspect]
     Dates: start: 20081103
  4. ZAPONEX [Suspect]
     Indication: SCHIZOPHRENIA
     Dosage: ORAL
     Route: 048
     Dates: start: 20060706
  5. AMLODIPINE [Concomitant]
  6. ASPIRIN [Concomitant]
  7. GLICLAZIDE [Concomitant]
  8. HEPSERA [Concomitant]
  9. LAMIVUDINE [Concomitant]
  10. METFORMIN HCL [Concomitant]
  11. PERINDOPRIL [Concomitant]
  12. PIRENZEPINE [Concomitant]
  13. SIMVASTATIN [Concomitant]
  14. VITAMIN K TAB [Concomitant]
  15. RITUXIMAB [Concomitant]

REACTIONS (4)
  - INFLUENZA LIKE ILLNESS [None]
  - LYMPHOCYTE COUNT ABNORMAL [None]
  - NON-HODGKIN'S LYMPHOMA [None]
  - WHITE BLOOD CELL COUNT ABNORMAL [None]
